FAERS Safety Report 17668688 (Version 1)
Quarter: 2020Q2

REPORT INFORMATION
  Report Type: Spontaneous
  Country: US (occurrence: US)
  Receive Date: 20200415
  Receipt Date: 20200415
  Transmission Date: 20200713
  Serious: No
  Sender: FDA-Public Use
  Company Number: US-AUROBINDO-AUR-APL-2020-015790

PATIENT
  Sex: Male

DRUGS (1)
  1. TADALAFIL TABLETS USP 20 MG [Suspect]
     Active Substance: TADALAFIL
     Indication: ERECTILE DYSFUNCTION
     Dosage: 1 DOSAGE FORM, ONCE A DAY (PATIENT TOOK DRUG 3 TIMES)
     Route: 065
     Dates: start: 20200208

REACTIONS (2)
  - Product substitution issue [Unknown]
  - Drug ineffective [Unknown]
